FAERS Safety Report 9448106 (Version 1)
Quarter: 2013Q3

REPORT INFORMATION
  Report Type: Spontaneous
  Country: US (occurrence: US)
  Receive Date: 20130808
  Receipt Date: 20130808
  Transmission Date: 20140515
  Serious: Yes (Hospitalization)
  Sender: FDA-Public Use
  Company Number: US-ROCHE-1237259

PATIENT
  Sex: Female

DRUGS (5)
  1. PEGASYS [Suspect]
     Indication: CHRONIC HEPATITIS C
     Route: 058
     Dates: start: 20130619
  2. PEGASYS [Suspect]
     Dosage: 11 YEARS AGO FOR 3 MONTHS
     Route: 065
     Dates: start: 2002, end: 2002
  3. TELAPREVIR [Suspect]
     Indication: CHRONIC HEPATITIS C
     Route: 065
     Dates: start: 20130619
  4. RIBASPHERE [Suspect]
     Indication: CHRONIC HEPATITIS C
     Dosage: DAILY IN 2 DIVIDED DOSES
     Route: 048
     Dates: start: 20130619
  5. RIBASPHERE [Suspect]
     Route: 048

REACTIONS (21)
  - Heart rate increased [Unknown]
  - Haemoglobin abnormal [Unknown]
  - Migraine [Unknown]
  - Dyspnoea [Unknown]
  - Anaemia [Unknown]
  - Pain in extremity [Unknown]
  - Paraesthesia [Unknown]
  - Rash [Unknown]
  - Urticaria [Unknown]
  - Oedema mouth [Unknown]
  - Arthralgia [Unknown]
  - Joint swelling [Unknown]
  - Anal pruritus [Unknown]
  - Anorectal discomfort [Unknown]
  - Injection site reaction [Unknown]
  - Injection site bruising [Unknown]
  - Aspartate aminotransferase decreased [Unknown]
  - Alanine aminotransferase decreased [Unknown]
  - Blood uric acid increased [Unknown]
  - Memory impairment [Unknown]
  - Insomnia [Unknown]
